FAERS Safety Report 9142905 (Version 1)
Quarter: 2013Q1

REPORT INFORMATION
  Report Type: Spontaneous
  Country: US (occurrence: US)
  Receive Date: 20130306
  Receipt Date: 20130306
  Transmission Date: 20140127
  Serious: No
  Sender: FDA-Public Use
  Company Number: US-BAYER-2013-024233

PATIENT
  Age: 82 Year
  Sex: Female
  Weight: 87 kg

DRUGS (10)
  1. ALEVE CAPLET/TABLET,MIDOL EXTENDED RELIEF CAPLET [Suspect]
     Dosage: 1 DF, QD
     Dates: start: 20130212
  2. BAYER ASPIRIN REGIMEN ADULT LOW STRENGTH [Suspect]
     Dosage: 1 DF, QD
     Route: 048
     Dates: start: 2011
  3. BAYER ASPIRIN REGIMEN ADULT LOW STRENGTH [Suspect]
  4. REGLAN [Concomitant]
  5. NEXIUM [Concomitant]
  6. DYAZIDE [Concomitant]
  7. DIOVAN [Concomitant]
  8. TOPROL [Concomitant]
  9. LEVOTHYROXINE [Concomitant]
  10. PRAVASTATIN [Concomitant]

REACTIONS (2)
  - Drug ineffective [None]
  - Contusion [Not Recovered/Not Resolved]
